FAERS Safety Report 4527881-5 (Version None)
Quarter: 2004Q4

REPORT INFORMATION
  Report Type: 
  Country: None (occurrence: None)
  Receive Date: 20041123
  Receipt Date: 20031003
  Transmission Date: 20050328
  Serious: Yes (Other)
  Sender: FDA-Public Use
  Company Number: HQWYE058607OCT03

PATIENT
  Age: 76 Year
  Sex: Female

DRUGS (3)
  1. ZOSYN [Suspect]
     Indication: PNEUMONIA
     Dosage: 4.5 GRAMS DAILY, INTRAVENOUS
     Route: 042
     Dates: start: 20030910, end: 20030928
  2. PROTONIX [Concomitant]
  3. FRAGMIN [Concomitant]

REACTIONS (2)
  - NEUTROPENIA [None]
  - THROMBOCYTOPENIA [None]
